FAERS Safety Report 4670854-2 (Version None)
Quarter: 2005Q2

REPORT INFORMATION
  Report Type: 
  Country: None (occurrence: None)
  Receive Date: 20050523
  Receipt Date: 20050418
  Transmission Date: 20051028
  Serious: Yes (Hospitalization)
  Sender: FDA-Public Use
  Company Number: US-MERCK-0504USA03596

PATIENT
  Age: 67 Year
  Sex: Male
  Weight: 86 kg

DRUGS (9)
  1. VIOXX [Suspect]
     Indication: ARTHRITIS
     Route: 048
     Dates: start: 20000101, end: 20040101
  2. DIOVAN [Concomitant]
     Route: 065
     Dates: start: 20031112
  3. COUMADIN [Concomitant]
     Route: 065
  4. ASPIRIN [Concomitant]
     Indication: CEREBROVASCULAR ACCIDENT PROPHYLAXIS
     Route: 065
     Dates: start: 20030101
  5. PLAVIX [Concomitant]
     Route: 065
     Dates: start: 20030101, end: 20030101
  6. LIPITOR [Concomitant]
     Route: 065
     Dates: start: 20040619
  7. ZOCOR [Concomitant]
     Route: 065
     Dates: start: 20030820, end: 20040216
  8. TYLENOL (CAPLET) [Concomitant]
     Route: 065
  9. LISINOPRIL [Concomitant]
     Route: 065
     Dates: start: 20030801

REACTIONS (9)
  - ARTHROPATHY [None]
  - ATRIAL FIBRILLATION [None]
  - CORONARY ARTERY STENOSIS [None]
  - EMOTIONAL DISTRESS [None]
  - HYPERTENSION [None]
  - INTERSTITIAL LUNG DISEASE [None]
  - LUNG INFILTRATION [None]
  - MYOCARDIAL INFARCTION [None]
  - SHOULDER ARTHROPLASTY [None]
